FAERS Safety Report 18328774 (Version 2)
Quarter: 2020Q4

REPORT INFORMATION
  Report Type: Spontaneous
  Country: DE (occurrence: DE)
  Receive Date: 20200930
  Receipt Date: 20201124
  Transmission Date: 20210113
  Serious: Yes (Hospitalization, Other)
  Sender: FDA-Public Use
  Company Number: DE-FERRINGPH-2020FE06526

PATIENT
  Age: 39 Year
  Sex: Female

DRUGS (3)
  1. PUREGON [FOLLITROPIN BETA] [Suspect]
     Active Substance: FOLLITROPIN
     Indication: ASSISTED REPRODUCTIVE TECHNOLOGY
     Dosage: 150 IU
     Route: 058
     Dates: start: 20200506, end: 20200515
  2. BREVACTID [Suspect]
     Active Substance: GONADOTROPHIN, CHORIONIC
     Indication: OVULATION INDUCTION
     Dosage: 5000 IU, ONCE/SINGLE
     Route: 058
     Dates: start: 20200516, end: 20200516
  3. ORGALUTRAN [Suspect]
     Active Substance: GANIRELIX ACETATE
     Indication: ASSISTED REPRODUCTIVE TECHNOLOGY
     Dosage: 1 X 1 /PER DAY
     Route: 058
     Dates: start: 20200510, end: 20200516

REACTIONS (4)
  - Ovarian hyperstimulation syndrome [Recovered/Resolved]
  - Ovarian cyst ruptured [Recovered/Resolved]
  - Haemorrhagic ovarian cyst [Recovered/Resolved]
  - Adnexal torsion [Recovered/Resolved]

NARRATIVE: CASE EVENT DATE: 20200522
